FAERS Safety Report 5273013-8 (Version None)
Quarter: 2007Q1

REPORT INFORMATION
  Report Type: 
  Country: None (occurrence: None)
  Receive Date: 20070322
  Receipt Date: 20070312
  Transmission Date: 20070707
  Serious: Yes (Other)
  Sender: FDA-Public Use
  Company Number: US-SHR-US-2005-026329

PATIENT
  Age: 53 Year
  Sex: Female

DRUGS (1)
  1. BETASERON [Suspect]
     Dosage: 8 MIU, EVERY 2D
     Route: 058
     Dates: start: 20050308

REACTIONS (5)
  - CONTUSION [None]
  - DRUG EFFECT DECREASED [None]
  - FALL [None]
  - LOSS OF CONSCIOUSNESS [None]
  - NECK INJURY [None]
